FAERS Safety Report 9287734 (Version 1)
Quarter: 2012Q4

REPORT INFORMATION
  Report Type: Spontaneous
  Country: ZA (occurrence: None)
  Receive Date: 20120913
  Receipt Date: 20120913
  Transmission Date: 20130627
  Serious: Yes (Death, Hospitalization)
  Sender: FDA-Public Use
  Company Number: 2012-4066

PATIENT
  Age: 45 Year
  Sex: Male
  Weight: 56 kg

DRUGS (1)
  1. LANREOTIDE AUTOGEL (LANREOTIDE) (LANREOTIDE ACETATE) [Suspect]
     Indication: CARCINOID SYNDROME
     Route: 058
     Dates: start: 20111101, end: 20120710

REACTIONS (11)
  - Cardiac disorder [None]
  - Metastases to central nervous system [None]
  - Hydrocephalus [None]
  - Vomiting [None]
  - Diarrhoea [None]
  - Abdominal pain [None]
  - Cyanosis [None]
  - Confusional state [None]
  - Sedation [None]
  - Hypoglycaemia [None]
  - Unresponsive to stimuli [None]
